FAERS Safety Report 5144575-6 (Version None)
Quarter: 2006Q4

REPORT INFORMATION
  Report Type: 
  Country: None (occurrence: None)
  Receive Date: 20061031
  Receipt Date: 20061020
  Transmission Date: 20070319
  Serious: Yes (Other)
  Sender: FDA-Public Use
  Company Number: 2006035596

PATIENT
  Age: 68 Year
  Sex: Male
  Weight: 59 kg

DRUGS (7)
  1. ATORVASTATIN CALCIUM [Suspect]
     Indication: CARDIAC DISORDER
     Dosage: 10 MG (10 MG, 3 IN 1 WK)
     Dates: start: 20040401, end: 20060214
  2. ATORVASTATIN CALCIUM [Suspect]
     Indication: DYSLIPIDAEMIA
     Dosage: 10 MG (10 MG, 3 IN 1 WK)
     Dates: start: 20040401, end: 20060214
  3. ATORVASTATIN CALCIUM [Suspect]
     Indication: LOW DENSITY LIPOPROTEIN INCREASED
     Dosage: 10 MG (10 MG, 3 IN 1 WK)
     Dates: start: 20040401, end: 20060214
  4. LOSARTAN POTASSIUM [Concomitant]
  5. ACEBUTOLOL [Concomitant]
  6. CLOPIDOGREL [Concomitant]
  7. ASPIRIN [Concomitant]

REACTIONS (14)
  - ANGINA PECTORIS [None]
  - ASTHENIA [None]
  - BLOOD CHOLESTEROL INCREASED [None]
  - CORONARY ARTERY DISEASE [None]
  - IATROGENIC INJURY [None]
  - LOW DENSITY LIPOPROTEIN INCREASED [None]
  - LUMBAR SPINAL STENOSIS [None]
  - MEDIAN NERVE INJURY [None]
  - MUSCULAR WEAKNESS [None]
  - MYALGIA [None]
  - PARAESTHESIA [None]
  - PERIPHERAL NERVE INJURY [None]
  - PERIPHERAL SENSORY NEUROPATHY [None]
  - SPINAL CORD INJURY CAUDA EQUINA [None]
